FAERS Safety Report 10310788 (Version 1)
Quarter: 2014Q3

REPORT INFORMATION
  Report Type: Spontaneous
  Country: US (occurrence: US)
  Receive Date: 20140717
  Receipt Date: 20140717
  Transmission Date: 20150326
  Serious: Yes (Other)
  Sender: FDA-Public Use
  Company Number: US-009507513-1407USA006996

PATIENT
  Sex: Male
  Weight: 108.39 kg

DRUGS (9)
  1. INTERFERON ALFA-2B [Suspect]
     Active Substance: INTERFERON ALFA-2B
  2. GABAPENTIN. [Concomitant]
     Active Substance: GABAPENTIN
  3. VICTRELIS [Suspect]
     Active Substance: BOCEPREVIR
     Indication: HEPATITIS C
     Dosage: 800 MG, TID
     Route: 048
     Dates: start: 20111201, end: 20120714
  4. PROCRIT [Concomitant]
     Active Substance: ERYTHROPOIETIN
  5. FOLIC ACID. [Concomitant]
     Active Substance: FOLIC ACID
  6. REBETOL [Suspect]
     Active Substance: RIBAVIRIN
  7. METFORMIN [Concomitant]
     Active Substance: METFORMIN HYDROCHLORIDE
  8. ENALAPRIL MALEATE. [Concomitant]
     Active Substance: ENALAPRIL MALEATE
  9. FILGRASTIM [Concomitant]
     Active Substance: FILGRASTIM

REACTIONS (1)
  - Rash [Recovered/Resolved]

NARRATIVE: CASE EVENT DATE: 20121009
